FAERS Safety Report 9502956 (Version 1)
Quarter: 2013Q3

REPORT INFORMATION
  Report Type: Report from Study
  Country: BR (occurrence: BR)
  Receive Date: 20130906
  Receipt Date: 20130906
  Transmission Date: 20140515
  Serious: Yes (Life-Threatening)
  Sender: FDA-Public Use
  Company Number: PHHY2013BR097755

PATIENT
  Sex: Female
  Weight: 70 kg

DRUGS (4)
  1. ACLASTA [Suspect]
     Indication: OSTEOPENIA
     Dosage: 5 MG, UNK
     Route: 042
     Dates: start: 2013
  2. DEPURA [Concomitant]
     Dosage: UNK UKN, UNK
     Dates: start: 2013
  3. OMEGA 3 [Concomitant]
     Dosage: UNK UKN, UNK
     Dates: start: 2013, end: 2013
  4. OS-CAL [Concomitant]
     Dosage: UNK UKN, UNK
     Dates: start: 2013

REACTIONS (6)
  - Feeling abnormal [Unknown]
  - Headache [Recovering/Resolving]
  - Pain [Recovering/Resolving]
  - Arthralgia [Recovering/Resolving]
  - Back pain [Recovering/Resolving]
  - Malaise [Unknown]
